FAERS Safety Report 9312933 (Version 2)
Quarter: 2013Q3

REPORT INFORMATION
  Report Type: Spontaneous
  Country: US (occurrence: US)
  Receive Date: 20130528
  Receipt Date: 20130828
  Transmission Date: 20140515
  Serious: No
  Sender: FDA-Public Use
  Company Number: US-ABBOTT-13P-163-1067411-00

PATIENT
  Sex: Male
  Weight: 90.8 kg

DRUGS (5)
  1. ANDROGEL [Suspect]
     Indication: PRIMARY HYPOGONADISM
     Dosage: 2 PUMPS
     Route: 061
     Dates: start: 201211, end: 20130321
  2. ANDROGEL [Suspect]
     Indication: BLOOD TESTOSTERONE DECREASED
     Dosage: 4 PUMPS
     Route: 061
     Dates: start: 20130322
  3. PRAVASTATIN [Concomitant]
     Indication: BLOOD CHOLESTEROL INCREASED
  4. ADVAIR [Concomitant]
     Indication: CHRONIC OBSTRUCTIVE PULMONARY DISEASE
  5. SPIRIVA [Concomitant]
     Indication: CHRONIC OBSTRUCTIVE PULMONARY DISEASE

REACTIONS (2)
  - Skin hypertrophy [Unknown]
  - Drug administered at inappropriate site [Unknown]
